FAERS Safety Report 10786896 (Version 1)
Quarter: 2015Q1

REPORT INFORMATION
  Report Type: Report from Study
  Country: US (occurrence: US)
  Receive Date: 20150211
  Receipt Date: 20150211
  Transmission Date: 20150721
  Serious: Yes (Other)
  Sender: FDA-Public Use
  Company Number: US-GLAXOSMITHKLINE-US2015015357

PATIENT

DRUGS (41)
  1. BLINDED ABACAVIR SULFATE + LAMIVUDINE [Suspect]
     Active Substance: ABACAVIR SULFATE\LAMIVUDINE
  2. BLINDED NO THERAPY [Suspect]
     Active Substance: UNSPECIFIED INGREDIENT
  3. BLINDED ROSIGLITAZONE MALEATE [Suspect]
     Active Substance: ROSIGLITAZONE MALEATE
  4. BLINDED ZIDOVUDINE [Suspect]
     Active Substance: ZIDOVUDINE
  5. BLINDED ADEFOVIR DIPIVOXIL [Suspect]
     Active Substance: ADEFOVIR DIPIVOXIL
  6. BLINDED AMPRENAVIR [Suspect]
     Active Substance: AMPRENAVIR
  7. BLINDED FOSAMPRENAVIR [Suspect]
     Active Substance: FOSAMPRENAVIR
  8. BLINDED FOSAMPRENAVIR [Suspect]
     Active Substance: FOSAMPRENAVIR
  9. BLINDED FOSAMPRENAVIR [Suspect]
     Active Substance: FOSAMPRENAVIR
  10. BLINDED LAMIVUDINE + ZIDOVUDINE [Suspect]
     Active Substance: LAMIVUDINE\ZIDOVUDINE
  11. BLINDED LAMIVUDINE. [Suspect]
     Active Substance: LAMIVUDINE
  12. TENOFOVIR DISOPROXIL FUMARATE [Suspect]
     Active Substance: TENOFOVIR DISOPROXIL FUMARATE
     Indication: PRODUCT USED FOR UNKNOWN INDICATION
     Route: 064
  13. BLINDED MARAVIROC [Suspect]
     Active Substance: MARAVIROC
  14. BLINDED RITONAVIR [Suspect]
     Active Substance: RITONAVIR
  15. BLINDED ZIDOVUDINE [Suspect]
     Active Substance: ZIDOVUDINE
  16. DARUNAVIR [Suspect]
     Active Substance: DARUNAVIR
     Indication: PRODUCT USED FOR UNKNOWN INDICATION
     Route: 064
  17. BLINDED ABACAVIR SULPHATE [Suspect]
     Active Substance: ABACAVIR SULFATE
  18. BLINDED ADEFOVIR DIPIVOXIL [Suspect]
     Active Substance: ADEFOVIR DIPIVOXIL
  19. BLINDED ATAZANAVIR [Suspect]
     Active Substance: ATAZANAVIR
  20. BLINDED LAMIVUDINE + ZIDOVUDINE [Suspect]
     Active Substance: LAMIVUDINE\ZIDOVUDINE
  21. BLINDED TENOFOVIR DISOPROXIL FUMARATE [Suspect]
     Active Substance: TENOFOVIR DISOPROXIL FUMARATE
  22. BLINDED ZIDOVUDINE [Suspect]
     Active Substance: ZIDOVUDINE
  23. BLINDED ZIDOVUDINE [Suspect]
     Active Substance: ZIDOVUDINE
  24. BLINDED ABACAVIR SULPHATE [Suspect]
     Active Substance: ABACAVIR SULFATE
  25. BLINDED ABACAVIR SULPHATE [Suspect]
     Active Substance: ABACAVIR SULFATE
  26. BLINDED ABACAVIRSULPHATE+DOLUTEGRAVIR+LAMIVUDINE [Suspect]
     Active Substance: ABACAVIR SULFATE\DOLUTEGRAVIR SODIUM\LAMIVUDINE
  27. BLINDED AMPRENAVIR [Suspect]
     Active Substance: AMPRENAVIR
  28. BLINDED DOLUTEGRAVIR [Suspect]
     Active Substance: DOLUTEGRAVIR
  29. BLINDED SALBUTAMOL SULPHATE [Suspect]
     Active Substance: ALBUTEROL SULFATE
  30. RITONAVIR. [Suspect]
     Active Substance: RITONAVIR
     Indication: PRODUCT USED FOR UNKNOWN INDICATION
     Route: 064
  31. BLINDED ABACAVIR SULFATE + LAMIVUDINE [Suspect]
     Active Substance: ABACAVIR SULFATE\LAMIVUDINE
  32. BLINDED BREVINOR [Suspect]
     Active Substance: ETHINYL ESTRADIOL\NORETHINDRONE
  33. BLINDED RITONAVIR [Suspect]
     Active Substance: RITONAVIR
  34. BLINDED ZIDOVUDINE [Suspect]
     Active Substance: ZIDOVUDINE
  35. BLINDED ZIDOVUDINE [Suspect]
     Active Substance: ZIDOVUDINE
  36. BLINDED ABACAVIR SULPHATE [Suspect]
     Active Substance: ABACAVIR SULFATE
  37. BLINDED ABACAVIR SULPHATE+LAMIVUDINE+ZIDOVUDINE [Suspect]
     Active Substance: ABACAVIR SULFATE\LAMIVUDINE\ZIDOVUDINE
  38. BLINDED ETHINYLOESTRADIOL + NORETHISTERONE [Suspect]
     Active Substance: ETHINYL ESTRADIOL\NORETHINDRONE
  39. BLINDED FOSAMPRENAVIR [Suspect]
     Active Substance: FOSAMPRENAVIR
  40. BLINDED LAMIVUDINE. [Suspect]
     Active Substance: LAMIVUDINE
  41. BLINDED SALBUTAMOL SULPHATE [Suspect]
     Active Substance: ALBUTEROL SULFATE

REACTIONS (2)
  - Foetal exposure during pregnancy [Recovered/Resolved]
  - Ventricular septal defect [Recovered/Resolved]
